FAERS Safety Report 10272702 (Version 1)
Quarter: 2014Q2

REPORT INFORMATION
  Report Type: Spontaneous
  Country: US (occurrence: None)
  Receive Date: 20140627
  Receipt Date: 20140627
  Transmission Date: 20141212
  Serious: Yes (Hospitalization)
  Sender: FDA-Public Use
  Company Number: 1713747-2014-99991

PATIENT
  Sex: Female

DRUGS (3)
  1. DELFLEX 2.5 % DEX. LM/LC 5L, 2-PK [Suspect]
     Indication: RENAL FAILURE CHRONIC
     Dosage: PD DAILY
     Dates: start: 20140519
  2. LIBERTY CYCLER [Concomitant]
  3. LIBERTY CYCLER SET [Concomitant]

REACTIONS (1)
  - Peritonitis [None]
